FAERS Safety Report 9518680 (Version 2)
Quarter: 2014Q2

REPORT INFORMATION
  Report Type: Report from Study
  Country: NL (occurrence: NL)
  Receive Date: 20130912
  Receipt Date: 20140404
  Transmission Date: 20141212
  Serious: Yes (Death)
  Sender: FDA-Public Use
  Company Number: PHHY2013NL100276

PATIENT
  Sex: Female

DRUGS (9)
  1. ACLASTA [Suspect]
     Indication: OSTEOPOROSIS
     Dosage: 5 MG/ ONCE EVERY 52 WEEKS
     Route: 042
     Dates: start: 20111004
  2. ACLASTA [Suspect]
     Dosage: 5 MG/ ONCE EVERY 52 WEEKS
     Route: 042
     Dates: start: 20121004
  3. THIAMINE [Concomitant]
     Dosage: UNK UKN, UNK
  4. ACIFOL//FOLIC ACID [Concomitant]
     Dosage: UNK
  5. DOMPERID//DOMPERIDONE [Concomitant]
     Dosage: UNK
  6. CAD [Concomitant]
     Dosage: UNK
  7. VITAMIN B12 [Concomitant]
     Dosage: 1 MG, UNK
  8. BETAHISTIN//BETAHISTINE HYDROCHLORIDE [Concomitant]
     Dosage: UNK
  9. LOSECA [Concomitant]
     Dosage: 20 MG, UNK

REACTIONS (1)
  - Death [Fatal]
